FAERS Safety Report 19205571 (Version 1)
Quarter: 2021Q2

REPORT INFORMATION
  Report Type: Spontaneous
  Country: US (occurrence: US)
  Receive Date: 20210503
  Receipt Date: 20210503
  Transmission Date: 20210717
  Serious: No
  Sender: FDA-Public Use
  Company Number: US-FARMAPROD-202103-0464

PATIENT
  Sex: Female

DRUGS (17)
  1. OXERVATE [Suspect]
     Active Substance: CENEGERMIN-BKBJ
     Indication: NEUROTROPHIC KERATOPATHY
     Route: 047
     Dates: start: 20210301
  2. PFIZER?BIONTECH COVID?19 VACCINE [Concomitant]
     Active Substance: TOZINAMERAN
  3. DICYCLOMINE HCL [Concomitant]
     Active Substance: DICYCLOMINE HYDROCHLORIDE
  4. HUMALOG [Concomitant]
     Active Substance: INSULIN LISPRO
     Dosage: 100/ML CARTRIDGE
  5. COMBIGAN [Concomitant]
     Active Substance: BRIMONIDINE TARTRATE\TIMOLOL MALEATE
     Dosage: 0.2%?0.5%
  6. METFORMIN [Concomitant]
     Active Substance: METFORMIN HYDROCHLORIDE
     Dosage: EXTENDED RELEASE GASTRIC
  7. LOTEMAX [Concomitant]
     Active Substance: LOTEPREDNOL ETABONATE
  8. PRAVASTATIN SODIUM. [Concomitant]
     Active Substance: PRAVASTATIN SODIUM
  9. REFRESH CONTACTS [Concomitant]
     Active Substance: CARBOXYMETHYLCELLULOSE SODIUM
  10. TRULICITY [Concomitant]
     Active Substance: DULAGLUTIDE
     Dosage: 0.75 MG/0.5 MG PEN INJECTION
  11. LANTUS [Concomitant]
     Active Substance: INSULIN GLARGINE
     Dosage: 100 ML/VIAL
  12. CLARITIN [Concomitant]
     Active Substance: LORATADINE
  13. VITAMIN D?400 [Concomitant]
  14. ASPIRINE [Concomitant]
     Active Substance: ASPIRIN
  15. CLOTRIMAZOLE. [Concomitant]
     Active Substance: CLOTRIMAZOLE
  16. LOSARTAN AND HYDROCHLOROTHIAZIDE [Concomitant]
     Active Substance: HYDROCHLOROTHIAZIDE\LOSARTAN POTASSIUM
  17. ERYTHROMYCIN. [Concomitant]
     Active Substance: ERYTHROMYCIN

REACTIONS (1)
  - Periorbital pain [Unknown]
